FAERS Safety Report 25185579 (Version 1)
Quarter: 2025Q2

REPORT INFORMATION
  Report Type: Report from Study
  Country: US (occurrence: US)
  Receive Date: 20250410
  Receipt Date: 20250410
  Transmission Date: 20250716
  Serious: Yes (Death, Hospitalization, Disabling)
  Sender: MYLAN
  Company Number: US-MYLANLABS-2025M1029125

PATIENT
  Age: 68 Year
  Sex: Female

DRUGS (1)
  1. LIPITOR [Suspect]
     Active Substance: ATORVASTATIN CALCIUM
     Indication: Product used for unknown indication

REACTIONS (2)
  - Death [Fatal]
  - Immune-mediated myositis [Unknown]

NARRATIVE: CASE EVENT DATE: 20240601
